FAERS Safety Report 17636365 (Version 4)
Quarter: 2020Q2

REPORT INFORMATION
  Report Type: Report from Study
  Country: US (occurrence: US)
  Receive Date: 20200407
  Receipt Date: 20200604
  Transmission Date: 20200713
  Serious: No
  Sender: FDA-Public Use
  Company Number: NVSC2020US089775

PATIENT
  Age: 70 Year
  Sex: Female

DRUGS (1)
  1. COSENTYX [Suspect]
     Active Substance: SECUKINUMAB
     Indication: PSORIASIS
     Dosage: 300 MG, QMO
     Route: 058
     Dates: start: 202001

REACTIONS (9)
  - Skin irritation [Unknown]
  - Skin fissures [Unknown]
  - Erythema [Unknown]
  - Constipation [Unknown]
  - Arthralgia [Unknown]
  - Myalgia [Unknown]
  - Psoriasis [Unknown]
  - Limb injury [Unknown]
  - Muscle tightness [Unknown]

NARRATIVE: CASE EVENT DATE: 202003
